FAERS Safety Report 9813514 (Version 1)
Quarter: 2014Q1

REPORT INFORMATION
  Report Type: Spontaneous
  Country: US (occurrence: None)
  Receive Date: 20140109
  Receipt Date: 20140109
  Transmission Date: 20141002
  Serious: Yes (Hospitalization)
  Sender: FDA-Public Use
  Company Number: None

PATIENT
  Age: 81 Year
  Sex: Female
  Weight: 79.2 kg

DRUGS (1)
  1. CARBOPLATIN [Suspect]

REACTIONS (10)
  - Abdominal distension [None]
  - Nausea [None]
  - Vomiting [None]
  - Diarrhoea [None]
  - Dizziness [None]
  - Dizziness [None]
  - Fall [None]
  - Flatulence [None]
  - Infrequent bowel movements [None]
  - Malaise [None]
